FAERS Safety Report 7335013-3 (Version None)
Quarter: 2011Q1

REPORT INFORMATION
  Report Type: 
  Country: None (occurrence: None)
  Receive Date: 20110302
  Receipt Date: 20110302
  Transmission Date: 20110831
  Serious: Yes (Hospitalization, Disabling)
  Sender: FDA-Public Use
  Company Number: None

PATIENT
  Sex: Female
  Weight: 82.5547 kg

DRUGS (3)
  1. OXYCODONE HCL [Suspect]
     Dosage: 10 MG. OXYDONE AS NEEDED (LONG TERM)
  2. LORTAB [Suspect]
     Indication: PAIN
     Dosage: 10MG. LOTAB AS NEEDED (LONG TERM)
  3. LORTAB [Suspect]
     Indication: FALL
     Dosage: 10MG. LOTAB AS NEEDED (LONG TERM)

REACTIONS (8)
  - ARTHRALGIA [None]
  - DIZZINESS [None]
  - DYSPNOEA [None]
  - CEREBROVASCULAR ACCIDENT [None]
  - CONFUSIONAL STATE [None]
  - MUSCULAR WEAKNESS [None]
  - MYOCARDIAL INFARCTION [None]
  - FALL [None]
